FAERS Safety Report 8604677-6 (Version None)
Quarter: 2012Q3

REPORT INFORMATION
  Report Type: 
  Country: None (occurrence: None)
  Receive Date: 20120820
  Receipt Date: 20120815
  Transmission Date: 20120928
  Serious: Yes (Death, Hospitalization)
  Sender: FDA-Public Use
  Company Number: PHHY2012BR071125

PATIENT
  Sex: Male

DRUGS (7)
  1. LEVOTHYROXINE SODIUM [Concomitant]
     Indication: HYPOTHYROIDISM
     Dosage: 1 DF, QD
     Dates: start: 20050101
  2. SUSTRATE [Concomitant]
     Indication: CARDIAC DISORDER
     Dosage: 1 DF, BID
     Route: 048
  3. FORMOTEROL FUMARATE [Suspect]
     Indication: ASTHMA
     Dosage: 1 DF, BID
     Dates: start: 20050101
  4. ASPIRIN [Concomitant]
     Indication: BLOOD DISORDER
     Dosage: 1 DF, QD
     Route: 048
     Dates: start: 19970101
  5. FORMOTEROL FUMARATE [Suspect]
     Dosage: 1 DF, QD
  6. BECLOMETHASONE DIPROPIONATE [Concomitant]
     Indication: RHINITIS ALLERGIC
     Dosage: 1 DF, QD
     Dates: start: 20060101
  7. FORMOTEROL FUMARATE [Suspect]
     Dosage: 2 DF, PRN

REACTIONS (5)
  - PNEUMONIA [None]
  - SEPSIS [None]
  - ASTHMA [None]
  - RESPIRATORY DISORDER [None]
  - LOWER LIMB FRACTURE [None]
